FAERS Safety Report 6030003-5 (Version None)
Quarter: 2008Q4

REPORT INFORMATION
  Report Type: 
  Country: None (occurrence: None)
  Receive Date: 20081222
  Receipt Date: 20080902
  Transmission Date: 20090506
  Serious: Yes (Hospitalization, Other)
  Sender: FDA-Public Use
  Company Number: US-WYE-H05827608

PATIENT
  Age: 74 Year
  Sex: Female
  Weight: 47.67 kg

DRUGS (8)
  1. PRISTIQ [Suspect]
     Indication: DEPRESSION
     Dosage: 50 MG 1X PER 1 DAY, ORAL
     Route: 048
     Dates: start: 20080827, end: 20080101
  2. CLONAZEPAM [Concomitant]
  3. PREMARIN [Concomitant]
  4. DIGOXIN [Concomitant]
  5. LEVOTHYROXINE SODIUM [Concomitant]
  6. MAGNESIUM (MAGNESIUM) [Concomitant]
  7. SPIRIVA [Concomitant]
  8. COUMADIN [Concomitant]

REACTIONS (2)
  - HYPERSENSITIVITY [None]
  - SEROTONIN SYNDROME [None]
